FAERS Safety Report 18186568 (Version 1)
Quarter: 2020Q3

REPORT INFORMATION
  Report Type: Spontaneous
  Country: US (occurrence: US)
  Receive Date: 20200824
  Receipt Date: 20200824
  Transmission Date: 20201103
  Serious: Yes (Other)
  Sender: FDA-Public Use
  Company Number: US-DRREDDYS-USA/USA/20/0126131

PATIENT
  Age: 58 Year
  Sex: Male

DRUGS (14)
  1. FENTANYL CITRATE. [Suspect]
     Active Substance: FENTANYL CITRATE
     Indication: INCISION SITE PAIN
  2. KETAMINE [Suspect]
     Active Substance: KETAMINE
     Indication: INCISION SITE PAIN
  3. METHOCARBAMOL. [Suspect]
     Active Substance: METHOCARBAMOL
     Indication: PROCEDURAL HEADACHE
  4. HYDROMORPHONE [Suspect]
     Active Substance: HYDROMORPHONE
     Indication: INCISION SITE PAIN
  5. FENTANYL CITRATE. [Suspect]
     Active Substance: FENTANYL CITRATE
     Indication: PROCEDURAL HEADACHE
  6. ACETAMINOPHEN. [Suspect]
     Active Substance: ACETAMINOPHEN
     Indication: INCISION SITE PAIN
  7. GABAPENTIN. [Suspect]
     Active Substance: GABAPENTIN
     Indication: PROCEDURAL HEADACHE
  8. ACETAMINOPHEN. [Suspect]
     Active Substance: ACETAMINOPHEN
     Indication: PROCEDURAL HEADACHE
  9. OXYCODONE [Suspect]
     Active Substance: OXYCODONE
     Indication: INCISION SITE PAIN
  10. METHOCARBAMOL. [Suspect]
     Active Substance: METHOCARBAMOL
     Indication: INCISION SITE PAIN
  11. KETAMINE [Suspect]
     Active Substance: KETAMINE
     Indication: PROCEDURAL HEADACHE
  12. HYDROMORPHONE [Suspect]
     Active Substance: HYDROMORPHONE
     Indication: PROCEDURAL HEADACHE
  13. OXYCODONE [Suspect]
     Active Substance: OXYCODONE
     Indication: INCISION SITE PAIN
  14. GABAPENTIN. [Suspect]
     Active Substance: GABAPENTIN
     Indication: INCISION SITE PAIN

REACTIONS (1)
  - Drug ineffective [Unknown]
